FAERS Safety Report 8944893 (Version 1)
Quarter: 2012Q4

REPORT INFORMATION
  Report Type: 
  Country: US (occurrence: US)
  Receive Date: 20121204
  Receipt Date: 20121204
  Transmission Date: 20130627
  Serious: No
  Sender: FDA-Public Use
  Company Number: US-AMGEN-USASP2012062288

PATIENT
  Age: 61 Year
  Sex: Female

DRUGS (5)
  1. ENBREL [Suspect]
     Indication: RHEUMATOID ARTHRITIS
     Dosage: 50 mg, qwk
     Route: 058
     Dates: start: 20120802
  2. METHOTREXATE [Concomitant]
     Dosage: 15 UNK, qwk
     Route: 048
     Dates: start: 201202
  3. LEVOTHYROXINE [Concomitant]
     Dosage: 75 mg, qd
     Route: 048
  4. PREDNISONE [Concomitant]
     Dosage: 10 mg, qd
     Route: 048
  5. TRAMADOL [Concomitant]
     Dosage: 50 UNK, tid
     Route: 048

REACTIONS (3)
  - Injection site erythema [Not Recovered/Not Resolved]
  - Injection site reaction [Not Recovered/Not Resolved]
  - Injection site rash [Not Recovered/Not Resolved]
